FAERS Safety Report 4882613-6 (Version None)
Quarter: 2006Q1

REPORT INFORMATION
  Report Type: 
  Country: None (occurrence: None)
  Receive Date: 20060117
  Receipt Date: 20021014
  Transmission Date: 20060701
  Serious: Yes (Hospitalization, Disabling)
  Sender: FDA-Public Use
  Company Number: US-MERCK-0210USA01515

PATIENT
  Age: 47 Year
  Sex: Male
  Weight: 86 kg

DRUGS (9)
  1. VIOXX [Suspect]
     Indication: INTERVERTEBRAL DISC PROTRUSION
     Route: 048
     Dates: start: 20000401, end: 20000728
  2. VIOXX [Suspect]
     Route: 048
     Dates: start: 20000427, end: 20000427
  3. VIOXX [Suspect]
     Route: 048
     Dates: start: 20000504, end: 20000504
  4. VIOXX [Suspect]
     Route: 048
     Dates: start: 20000511, end: 20000511
  5. VIOXX [Suspect]
     Route: 048
     Dates: start: 20000622, end: 20000622
  6. ATENOLOL [Concomitant]
     Route: 065
  7. ACCUPRIL [Concomitant]
     Route: 065
  8. PRAVACHOL [Concomitant]
     Route: 065
  9. PLAVIX [Concomitant]
     Route: 065

REACTIONS (6)
  - CARDIAC DISORDER [None]
  - DIABETES MELLITUS [None]
  - HYPERLIPIDAEMIA [None]
  - LUMBAR SPINAL STENOSIS [None]
  - MYOCARDIAL INFARCTION [None]
  - OBESITY [None]
